FAERS Safety Report 19842811 (Version 1)
Quarter: 2021Q3

REPORT INFORMATION
  Report Type: Spontaneous
  Country: FR (occurrence: FR)
  Receive Date: 20210915
  Receipt Date: 20210915
  Transmission Date: 20211014
  Serious: Yes (Death, Other)
  Sender: FDA-Public Use
  Company Number: FR-ABBVIE-21K-056-4079520-00

PATIENT
  Age: 53 Year
  Sex: Male
  Weight: 100 kg

DRUGS (3)
  1. DEPAKOTE ER [Suspect]
     Active Substance: DIVALPROEX SODIUM
     Indication: DEPRESSION
     Route: 048
     Dates: start: 20180314, end: 20180412
  2. TERCIAN THERAPLIX [Suspect]
     Active Substance: CYAMEMAZINE
     Indication: DEPRESSION
     Route: 048
     Dates: start: 20180314, end: 20180412
  3. RAMIPRIL. [Concomitant]
     Active Substance: RAMIPRIL
     Indication: PRODUCT USED FOR UNKNOWN INDICATION

REACTIONS (5)
  - Mood swings [Fatal]
  - Persecutory delusion [Fatal]
  - Major depression [Fatal]
  - Asphyxia [Fatal]
  - Completed suicide [Fatal]

NARRATIVE: CASE EVENT DATE: 20180409
